FAERS Safety Report 8832715 (Version 1)
Quarter: 2012Q4

REPORT INFORMATION
  Report Type: 
  Country: US (occurrence: US)
  Receive Date: 20121010
  Receipt Date: 20121010
  Transmission Date: 20130627
  Serious: Yes (Hospitalization)
  Sender: FDA-Public Use
  Company Number: US-PAR PHARMACEUTICAL, INC-2012SCPR004635

PATIENT

DRUGS (9)
  1. DIVALPROEX SODIUM ER [Suspect]
     Indication: FRONTAL LOBE EPILEPSY
     Dosage: 500 mg, bid
     Route: 065
  2. DIVALPROEX SODIUM ER [Interacting]
     Dosage: 750 mg, bid
     Route: 065
  3. DIVALPROEX SODIUM ER [Interacting]
     Dosage: 1000 mg, bid
     Route: 065
  4. LAMOTRIGINE [Interacting]
     Indication: FRONTAL LOBE EPILEPSY
     Dosage: 200 mg, bid
     Route: 065
  5. RISPERIDONE [Concomitant]
     Indication: PRODUCT USED FOR UNKNOWN INDICATION
     Dosage: 3 mg, qd
     Route: 065
  6. VITAMIN B1 [Concomitant]
     Indication: PRODUCT USED FOR UNKNOWN INDICATION
     Dosage: 100 mg, qd
     Route: 065
  7. VITAMIN D3 [Concomitant]
     Indication: PRODUCT USED FOR UNKNOWN INDICATION
     Dosage: 2000 IU, qd
     Route: 065
  8. TOPIRAMATE [Concomitant]
     Indication: PRODUCT USED FOR UNKNOWN INDICATION
     Dosage: 150 mg, bid
     Route: 065
  9. LORAZEPAM [Concomitant]
     Indication: PRODUCT USED FOR UNKNOWN INDICATION
     Dosage: 0.5 mg, tid
     Route: 065

REACTIONS (7)
  - Depressed level of consciousness [Recovering/Resolving]
  - Mental status changes [Recovering/Resolving]
  - Drug interaction [Unknown]
  - Dysarthria [Recovering/Resolving]
  - Hallucination [Recovering/Resolving]
  - Ataxia [Recovering/Resolving]
  - Aggression [Recovering/Resolving]
